FAERS Safety Report 5073502-5 (Version None)
Quarter: 2006Q3

REPORT INFORMATION
  Report Type: 
  Country: None (occurrence: None)
  Receive Date: 20060808
  Receipt Date: 20060707
  Transmission Date: 20061208
  Serious: Yes (Other)
  Sender: FDA-Public Use
  Company Number: PHBS2006CH10332

PATIENT
  Age: 51 Year
  Sex: Male
  Weight: 92 kg

DRUGS (5)
  1. LITHIUM [Concomitant]
     Indication: SCHIZOPHRENIA, PARANOID TYPE
     Dosage: 1200 MG/D
     Route: 065
  2. CLOZAPINE [Suspect]
     Indication: SCHIZOPHRENIA, PARANOID TYPE
     Dosage: 500 MG/D
     Route: 065
  3. AMOXICILLIN [Suspect]
  4. CLAVULANIC ACID [Suspect]
  5. TRICHLOROETHYLENE [Suspect]
     Dosage: 0.5 L, ONCE/SINGLE

REACTIONS (7)
  - BILE DUCT STONE [None]
  - CHOLELITHIASIS [None]
  - CHOLESTASIS [None]
  - LIVER FUNCTION TEST ABNORMAL [None]
  - RENAL CYST [None]
  - SUICIDE ATTEMPT [None]
  - TOOTH ABSCESS [None]
